FAERS Safety Report 9315134 (Version 1)
Quarter: 2013Q2

REPORT INFORMATION
  Report Type: Spontaneous
  Country: US (occurrence: US)
  Receive Date: 20130529
  Receipt Date: 20130529
  Transmission Date: 20140414
  Serious: Yes (Other)
  Sender: FDA-Public Use
  Company Number: US-US-EMD SERONO, INC.-230249J08USA

PATIENT
  Sex: Female
  Weight: 58 kg

DRUGS (3)
  1. REBIF [Suspect]
     Indication: MULTIPLE SCLEROSIS
     Route: 058
     Dates: start: 2002
  2. REBIF [Suspect]
     Route: 058
     Dates: start: 20050314, end: 200801
  3. REBIF [Suspect]
     Route: 058
     Dates: start: 20080614

REACTIONS (1)
  - Scoliosis [Recovered/Resolved]
